FAERS Safety Report 6590351-7 (Version None)
Quarter: 2010Q1

REPORT INFORMATION
  Report Type: 
  Country: None (occurrence: None)
  Receive Date: 20100205
  Receipt Date: 20100122
  Transmission Date: 20100710
  Serious: Yes (Death, Hospitalization)
  Sender: FDA-Public Use
  Company Number: A-NJ2009-26173

PATIENT
  Age: 76 Year
  Sex: Female
  Weight: 61.7 kg

DRUGS (2)
  1. VENTAVIS [Suspect]
     Indication: PULMONARY ARTERIAL HYPERTENSION
     Dosage: 5 UG, Q3HRS, RESPIRATORY
     Route: 055
     Dates: start: 20080205, end: 20081013
  2. VENTAVIS [Suspect]
     Indication: PULMONARY ARTERIAL HYPERTENSION
     Dosage: 5 UG, Q3HRS, RESPIRATORY
     Route: 055
     Dates: start: 20090601

REACTIONS (2)
  - CONDITION AGGRAVATED [None]
  - PULMONARY ARTERIAL HYPERTENSION [None]
